FAERS Safety Report 9540650 (Version 1)
Quarter: 2013Q3

REPORT INFORMATION
  Report Type: Spontaneous
  Country: US (occurrence: US)
  Receive Date: 20130920
  Receipt Date: 20130920
  Transmission Date: 20140515
  Serious: Yes (Hospitalization)
  Sender: FDA-Public Use
  Company Number: CHPA2013US014366

PATIENT
  Age: 62 Year
  Sex: Male

DRUGS (1)
  1. CONTROL PLP [Suspect]
     Indication: SMOKING CESSATION THERAPY
     Dosage: 21 MG, UNK
     Route: 062

REACTIONS (4)
  - Bipolar disorder [Unknown]
  - Insomnia [Recovered/Resolved]
  - Overdose [Unknown]
  - Treatment noncompliance [Unknown]
